FAERS Safety Report 6204235-7 (Version None)
Quarter: 2009Q2

REPORT INFORMATION
  Report Type: 
  Country: None (occurrence: None)
  Receive Date: 20090527
  Receipt Date: 20090519
  Transmission Date: 20091009
  Serious: Yes (Death, Hospitalization)
  Sender: FDA-Public Use
  Company Number: GB-ELI_LILLY_AND_COMPANY-GB200810002745

PATIENT
  Sex: Female
  Weight: 77 kg

DRUGS (9)
  1. ALIMTA [Suspect]
     Indication: MESOTHELIOMA
     Dosage: 875 MG SINGLE DOSE
     Route: 042
     Dates: start: 20080620
  2. FOLIC ACID [Concomitant]
     Indication: PROPHYLAXIS
     Dosage: UNK, UNKNOWN
     Route: 065
     Dates: start: 20060610
  3. VITAMIN B-12 [Concomitant]
     Indication: PROPHYLAXIS
     Dosage: UNK, UNKNOWN
     Route: 030
     Dates: start: 20060610
  4. ENALAPRIL MALEATE [Concomitant]
     Dosage: UNK, UNKNOWN
     Route: 065
  5. GLICLAZIDE [Concomitant]
     Dosage: UNK, UNKNOWN
     Route: 065
  6. ATORVASTATIN CALCIUM [Concomitant]
     Dosage: UNK, UNKNOWN
     Route: 065
  7. ESOMEPRAZOLE MAGNESIUM [Concomitant]
     Dosage: UNK, UNKNOWN
     Route: 065
  8. INDAPAMIDE [Concomitant]
     Dosage: UNK, UNKNOWN
     Route: 065
  9. TEMAZEPAM [Concomitant]
     Dosage: UNK, UNKNOWN
     Route: 065

REACTIONS (8)
  - ANOREXIA [None]
  - DEATH [None]
  - DIARRHOEA [None]
  - HYPOGLYCAEMIA [None]
  - MUCOSAL INFLAMMATION [None]
  - RASH PRURITIC [None]
  - STOMATITIS [None]
  - VOMITING [None]
